FAERS Safety Report 7870763-1 (Version None)
Quarter: 2011Q4

REPORT INFORMATION
  Report Type: 
  Country: None (occurrence: None)
  Receive Date: 20111029
  Receipt Date: 20110221
  Transmission Date: 20120403
  Serious: No
  Sender: FDA-Public Use
  Company Number: US-AMGEN-USASP2011010129

PATIENT
  Age: 55 Year
  Sex: Male

DRUGS (1)
  1. ENBREL [Suspect]
     Indication: RHEUMATOID ARTHRITIS
     Dosage: 50 MG, QWK
     Dates: start: 20060101

REACTIONS (9)
  - FINGER DEFORMITY [None]
  - DRUG INEFFECTIVE [None]
  - THERAPEUTIC RESPONSE DECREASED [None]
  - MUSCULOSKELETAL PAIN [None]
  - ARTHRALGIA [None]
  - LABORATORY TEST ABNORMAL [None]
  - ARTHRITIS [None]
  - ANAL FISTULA [None]
  - TENDON DISORDER [None]
